FAERS Safety Report 6686976-0 (Version None)
Quarter: 2010Q2

REPORT INFORMATION
  Report Type: 
  Country: None (occurrence: None)
  Receive Date: 20100419
  Receipt Date: 20100409
  Transmission Date: 20101027
  Serious: Yes (Other)
  Sender: FDA-Public Use
  Company Number: BE-PFIZER INC-2010045436

PATIENT
  Sex: Male

DRUGS (2)
  1. CAMPTOSAR [Suspect]
     Route: 042
  2. ELVORINE [Suspect]

REACTIONS (3)
  - ANGIOEDEMA [None]
  - HYPERSENSITIVITY [None]
  - THROAT TIGHTNESS [None]
